FAERS Safety Report 7376403-2 (Version None)
Quarter: 2011Q1

REPORT INFORMATION
  Report Type: 
  Country: None (occurrence: None)
  Receive Date: 20110325
  Receipt Date: 20110311
  Transmission Date: 20110831
  Serious: Yes (Hospitalization, Other)
  Sender: FDA-Public Use
  Company Number: US-BAYER-201029386NA

PATIENT
  Sex: Female
  Weight: 77.551 kg

DRUGS (10)
  1. YASMIN [Suspect]
     Indication: PRODUCT USED FOR UNKNOWN INDICATION
     Route: 048
     Dates: start: 20060701
  2. PLAVIX [Concomitant]
  3. YAZ [Suspect]
     Indication: PRODUCT USED FOR UNKNOWN INDICATION
     Route: 048
     Dates: start: 20060701
  4. OCELLA [Suspect]
     Indication: PRODUCT USED FOR UNKNOWN INDICATION
     Route: 065
     Dates: start: 20060701
  5. LOPRESSOR [Concomitant]
  6. ALTACE [Concomitant]
     Dosage: UNK
     Dates: end: 20071101
  7. METOPROLOL [Concomitant]
  8. ASPIRIN [Concomitant]
     Dosage: UNK
     Dates: end: 20071101
  9. ASPIRIN [Concomitant]
  10. LIPITOR [Concomitant]
     Dosage: UNK
     Dates: end: 20071101

REACTIONS (1)
  - MYOCARDIAL INFARCTION [None]
